FAERS Safety Report 9916439 (Version 2)
Quarter: 2014Q1

REPORT INFORMATION
  Report Type: Report from Study
  Country: CA (occurrence: CA)
  Receive Date: 20140221
  Receipt Date: 20140304
  Transmission Date: 20141002
  Serious: Yes (Death, Other)
  Sender: FDA-Public Use
  Company Number: PHHY2014CA021384

PATIENT
  Sex: Male

DRUGS (2)
  1. CLOZARIL [Suspect]
     Indication: SCHIZOPHRENIA
     Dosage: 600 MG, PER DAY
     Route: 048
     Dates: start: 20000929
  2. CLOZARIL [Suspect]
     Dosage: 25 MG, UNK
     Route: 048

REACTIONS (7)
  - Hepatic cancer metastatic [Fatal]
  - General physical health deterioration [Fatal]
  - Jaundice [Fatal]
  - Respiratory arrest [Fatal]
  - Coma [Fatal]
  - Depressed level of consciousness [Unknown]
  - Respiratory depression [Unknown]
